FAERS Safety Report 5309547-7 (Version None)
Quarter: 2007Q2

REPORT INFORMATION
  Report Type: 
  Country: None (occurrence: None)
  Receive Date: 20070427
  Receipt Date: 20061116
  Transmission Date: 20071010
  Serious: No
  Sender: FDA-Public Use
  Company Number: US-GLAXOSMITHKLINE-A0627818A

PATIENT
  Sex: Male

DRUGS (3)
  1. DEXTROAMPHETAMINE SULFATE [Suspect]
     Indication: NARCOLEPSY
     Dosage: 25MG PER DAY
     Route: 048
     Dates: start: 20060801
  2. PROVIGIL [Concomitant]
  3. ADDERALL XR 10 [Concomitant]

REACTIONS (3)
  - DRUG INEFFECTIVE [None]
  - SENSORY DISTURBANCE [None]
  - SEXUAL DYSFUNCTION [None]
